FAERS Safety Report 16877434 (Version 2)
Quarter: 2020Q4

REPORT INFORMATION
  Report Type: Spontaneous
  Country: US (occurrence: US)
  Receive Date: 20191002
  Receipt Date: 20201126
  Transmission Date: 20210113
  Serious: Yes (Death)
  Sender: FDA-Public Use
  Company Number: US-MERZ PHARMACEUTICALS GMBH-19-03998

PATIENT
  Age: 42 Year
  Sex: Female

DRUGS (2)
  1. XEOMIN [Suspect]
     Active Substance: INCOBOTULINUMTOXINA
     Indication: HEMIPLEGIA
     Route: 030
     Dates: start: 201805, end: 20190426
  2. BACLOFEN. [Concomitant]
     Active Substance: BACLOFEN
     Indication: HEMIPLEGIA
     Dosage: 60 MG
     Route: 048

REACTIONS (1)
  - Death [Fatal]
